FAERS Safety Report 4589282-3 (Version None)
Quarter: 2005Q1

REPORT INFORMATION
  Report Type: 
  Country: None (occurrence: None)
  Receive Date: 20050216
  Receipt Date: 20050204
  Transmission Date: 20050727
  Serious: Yes (Death, Hospitalization, Other)
  Sender: FDA-Public Use
  Company Number: USA-2004-0012553

PATIENT
  Age: 40 Year
  Sex: Female
  Weight: 71.7 kg

DRUGS (10)
  1. OXYCONTIN [Suspect]
     Indication: PAIN
     Dosage: SEE IMAGE
     Dates: start: 20010101, end: 20010129
  2. OXYCONTIN [Suspect]
     Indication: PAIN
     Dosage: SEE IMAGE
     Dates: start: 20010129
  3. OXYCONTIN [Suspect]
     Indication: PAIN
     Dosage: SEE IMAGE
     Dates: start: 20020101
  4. PROZAC [Concomitant]
  5. DEMEROL [Concomitant]
  6. SYNTHROID [Concomitant]
  7. PHENERGAN ^NATRAPHAMR^ (PROMETHAZINE HYDROCHLORIDE) [Concomitant]
  8. TRAZADONE (TRAZADONE) [Concomitant]
  9. TEQUIN [Concomitant]
  10. NEURONTIN [Concomitant]

REACTIONS (10)
  - ACCIDENTAL DEATH [None]
  - CEREBELLAR INFARCTION [None]
  - COMA [None]
  - DECUBITUS ULCER [None]
  - DRUG TOXICITY [None]
  - HEPATIC CONGESTION [None]
  - LEUKOENCEPHALOPATHY [None]
  - NEPHROSCLEROSIS [None]
  - PNEUMONIA [None]
  - SOMNOLENCE [None]
